FAERS Safety Report 24632017 (Version 2)
Quarter: 2024Q4

REPORT INFORMATION
  Report Type: Spontaneous
  Country: US (occurrence: US)
  Receive Date: 20241118
  Receipt Date: 20241128
  Transmission Date: 20250115
  Serious: No
  Sender: VIFOR (INTERNATIONAL) INC.
  Company Number: US-Vifor (International) Inc.-VIT-2024-10006

PATIENT
  Sex: Male

DRUGS (1)
  1. VELTASSA [Suspect]
     Active Substance: PATIROMER
     Indication: Hyperkalaemia

REACTIONS (4)
  - Drug ineffective [Unknown]
  - Off label use [Unknown]
  - Product use complaint [Unknown]
  - No adverse event [Unknown]
